FAERS Safety Report 21786821 (Version 2)
Quarter: 2023Q1

REPORT INFORMATION
  Report Type: Report from Study
  Country: TW (occurrence: TW)
  Receive Date: 20221228
  Receipt Date: 20230105
  Transmission Date: 20230417
  Serious: Yes (Death)
  Sender: FDA-Public Use
  Company Number: TW-002147023-NVSC2022TW297512

PATIENT
  Sex: Female

DRUGS (4)
  1. VOTRIENT [Suspect]
     Active Substance: PAZOPANIB HYDROCHLORIDE
     Indication: Rhabdomyosarcoma
     Dosage: 3, QD (BEFORE ASCT) (SELF PAID AT THE BEGINNING)
     Route: 048
     Dates: start: 20220912, end: 20221008
  2. VOTRIENT [Suspect]
     Active Substance: PAZOPANIB HYDROCHLORIDE
     Dosage: 3, QD (COMPASSIONATE DRUG)) (BEFORE ASCT)
     Route: 048
     Dates: start: 20221030, end: 20221113
  3. VINORELBINE [Concomitant]
     Active Substance: VINORELBINE TARTRATE
     Indication: Product used for unknown indication
     Dosage: UNK, QW
     Route: 065
     Dates: start: 20220911, end: 20221009
  4. TRABECTEDIN [Concomitant]
     Active Substance: TRABECTEDIN
     Indication: Product used for unknown indication
     Dosage: UNK
     Route: 065
     Dates: start: 20221030

REACTIONS (6)
  - Rhabdomyosarcoma [Fatal]
  - Transplantation complication [Fatal]
  - Blood lactate dehydrogenase abnormal [Fatal]
  - Blood urea abnormal [Fatal]
  - Blood creatinine abnormal [Fatal]
  - Blood potassium abnormal [Fatal]

NARRATIVE: CASE EVENT DATE: 20221208
